FAERS Safety Report 5429808-0 (Version None)
Quarter: 2007Q3

REPORT INFORMATION
  Report Type: 
  Country: None (occurrence: None)
  Receive Date: 20070827
  Receipt Date: 20070823
  Transmission Date: 20080115
  Serious: No
  Sender: FDA-Public Use
  Company Number: 070087

PATIENT
  Age: 67 Year
  Sex: Male
  Weight: 93.8946 kg

DRUGS (4)
  1. HALFLYTELY [Suspect]
     Indication: COLONOSCOPY
     Dosage: 20 MG/8 OZ, 1X, PO
     Route: 048
     Dates: start: 20070705
  2. PROTONIX [Concomitant]
  3. BENICAR HCT [Concomitant]
  4. AVODART [Concomitant]

REACTIONS (3)
  - ANAPHYLACTIC REACTION [None]
  - BLOOD PRESSURE DECREASED [None]
  - LOSS OF CONSCIOUSNESS [None]
